FAERS Safety Report 5446856-5 (Version None)
Quarter: 2007Q3

REPORT INFORMATION
  Report Type: 
  Country: None (occurrence: None)
  Receive Date: 20070907
  Receipt Date: 20070827
  Transmission Date: 20080115
  Serious: Yes (Other)
  Sender: FDA-Public Use
  Company Number: CZ-PFIZER INC-2007073636

PATIENT
  Age: 57 Year
  Sex: Female

DRUGS (4)
  1. NEURONTIN [Suspect]
     Indication: POLYNEUROPATHY
     Route: 048
  2. MEDROL [Concomitant]
  3. KALIUM CHLORATUM SPOFA [Concomitant]
  4. CIPRALEX [Concomitant]

REACTIONS (4)
  - COMPLEX PARTIAL SEIZURES [None]
  - DEMYELINATION [None]
  - DYSPNOEA [None]
  - FACE OEDEMA [None]
